FAERS Safety Report 9660106 (Version 1)
Quarter: 2013Q4

REPORT INFORMATION
  Report Type: Spontaneous
  Country: US (occurrence: US)
  Receive Date: 20131031
  Receipt Date: 20131031
  Transmission Date: 20140711
  Serious: No
  Sender: FDA-Public Use
  Company Number: US-ABBVIE-12P-163-1024249-00

PATIENT
  Age: 62 Year
  Sex: Female
  Weight: 58.11 kg

DRUGS (5)
  1. BIAXIN [Suspect]
     Indication: GASTRIC ULCER
     Dates: start: 20121211, end: 20121211
  2. HYDROCHLOROTHIAZIDE [Concomitant]
     Indication: HYPERTENSION
     Dosage: UNKNOWN
  3. RANITIDINE [Concomitant]
     Indication: GASTROOESOPHAGEAL REFLUX DISEASE
     Dosage: UNKNOWN
  4. LORAZEPAM [Concomitant]
     Indication: INSOMNIA
     Dosage: UNKNOWN
  5. AMOXICILLIN [Concomitant]
     Indication: GASTRIC ULCER
     Dosage: TWO TABLETS
     Dates: start: 20121211, end: 20121211

REACTIONS (1)
  - Dysgeusia [Not Recovered/Not Resolved]
